FAERS Safety Report 11146000 (Version 1)
Quarter: 2015Q2

REPORT INFORMATION
  Report Type: Spontaneous
  Country: US (occurrence: None)
  Receive Date: 20150527
  Receipt Date: 20150527
  Transmission Date: 20150821
  Serious: Yes (Disabling)
  Sender: FDA-Public Use
  Company Number: None

PATIENT
  Age: 50 Year
  Sex: Female
  Weight: 90.72 kg

DRUGS (7)
  1. CALCIUM SUPPLEMENT [Concomitant]
     Active Substance: CALCIUM
  2. DAILY VITAMIN [Concomitant]
     Active Substance: VITAMINS
  3. PROBIOTIC [Concomitant]
     Active Substance: PROBIOTICS NOS
  4. BRINTELLIX [Suspect]
     Active Substance: VORTIOXETINE HYDROBROMIDE
     Indication: DEPRESSION
     Route: 048
     Dates: start: 20150504, end: 20150515
  5. LIQUID ERTHHROMYCIN SOL 2% [Concomitant]
  6. VIIBRYD [Concomitant]
     Active Substance: VILAZODONE HYDROCHLORIDE
  7. CEPHALEXIN. [Concomitant]
     Active Substance: CEPHALEXIN

REACTIONS (3)
  - Vitreous floaters [None]
  - Pruritus [None]
  - Photopsia [None]

NARRATIVE: CASE EVENT DATE: 20150515
